FAERS Safety Report 18092878 (Version 1)
Quarter: 2020Q3

REPORT INFORMATION
  Report Type: Spontaneous
  Country: US (occurrence: US)
  Receive Date: 20200730
  Receipt Date: 20200730
  Transmission Date: 20201103
  Serious: No
  Sender: FDA-Public Use
  Company Number: NVSC2020US213284

PATIENT
  Age: 55 Year
  Sex: Female

DRUGS (1)
  1. VOLTAREN [Suspect]
     Active Substance: DICLOFENAC SODIUM
     Indication: PAIN
     Dosage: UNK
     Route: 065
     Dates: start: 20200717, end: 20200717

REACTIONS (4)
  - Feeling abnormal [Recovered/Resolved]
  - Dyspnoea [Recovered/Resolved]
  - Product administered at inappropriate site [Unknown]
  - Poor quality sleep [Recovered/Resolved]

NARRATIVE: CASE EVENT DATE: 20200717
